FAERS Safety Report 5669356-6 (Version None)
Quarter: 2008Q1

REPORT INFORMATION
  Report Type: 
  Country: None (occurrence: None)
  Receive Date: 20080317
  Receipt Date: 20080311
  Transmission Date: 20080703
  Serious: Yes (Disabling)
  Sender: FDA-Public Use
  Company Number: US-MERCK-0803USA00998

PATIENT
  Age: 63 Year
  Sex: Male

DRUGS (6)
  1. EMEND [Suspect]
     Indication: PROPHYLAXIS OF NAUSEA AND VOMITING
     Route: 048
     Dates: start: 20080226, end: 20080226
  2. EMEND [Suspect]
     Route: 048
     Dates: start: 20080227, end: 20080228
  3. MELPHALAN [Concomitant]
     Route: 065
     Dates: start: 20080226
  4. ZOFRAN [Concomitant]
     Route: 065
     Dates: start: 20080226
  5. DECADRON [Concomitant]
     Route: 065
     Dates: start: 20080226
  6. DECADRON [Concomitant]
     Route: 065
     Dates: start: 20080227

REACTIONS (3)
  - ASTERIXIS [None]
  - DYSKINESIA [None]
  - MUSCULAR WEAKNESS [None]
